FAERS Safety Report 10073669 (Version 1)
Quarter: 2014Q2

REPORT INFORMATION
  Report Type: Other
  Country: TR (occurrence: TR)
  Receive Date: 20140411
  Receipt Date: 20140411
  Transmission Date: 20141212
  Serious: Yes (Other)
  Sender: FDA-Public Use
  Company Number: TR-BRISTOL-MYERS SQUIBB COMPANY-20605218

PATIENT
  Age: 17 Year
  Sex: Male

DRUGS (1)
  1. METFORMIN HCL [Suspect]
     Indication: INSULIN RESISTANCE
     Dosage: INCREASE THE DOSAGE TO 250MG TWICE DAILY 1 WEEK LATER

REACTIONS (2)
  - Haemolytic anaemia [Unknown]
  - Off label use [Unknown]
